FAERS Safety Report 5746747-6 (Version None)
Quarter: 2008Q2

REPORT INFORMATION
  Report Type: 
  Country: None (occurrence: None)
  Receive Date: 20080522
  Receipt Date: 20080520
  Transmission Date: 20081010
  Serious: Yes (Hospitalization)
  Sender: FDA-Public Use
  Company Number: FR-ASTRAZENECA-2008AC01285

PATIENT
  Age: 50 Year
  Sex: Female

DRUGS (1)
  1. GEFITINIB [Suspect]
     Indication: LUNG NEOPLASM MALIGNANT

REACTIONS (1)
  - PROPIONIBACTERIUM INFECTION [None]
